FAERS Safety Report 5142207-4 (Version None)
Quarter: 2006Q4

REPORT INFORMATION
  Report Type: 
  Country: None (occurrence: None)
  Receive Date: 20061030
  Receipt Date: 20061030
  Transmission Date: 20070319
  Serious: Yes (Other)
  Sender: FDA-Public Use
  Company Number: None

PATIENT
  Sex: Female

DRUGS (1)
  1. OXYBUTYNIN     5 MG     WATSON [Suspect]
     Indication: URINARY INCONTINENCE
     Dosage: ONE TABLET   TWICE DAILY   PO
     Route: 048
     Dates: start: 20061004, end: 20061024

REACTIONS (2)
  - OEDEMA PERIPHERAL [None]
  - SWELLING FACE [None]
